FAERS Safety Report 6867897-7 (Version None)
Quarter: 2010Q3

REPORT INFORMATION
  Report Type: 
  Country: None (occurrence: None)
  Receive Date: 20100722
  Receipt Date: 20100714
  Transmission Date: 20110219
  Serious: Yes (Death, Other)
  Sender: FDA-Public Use
  Company Number: US-SANOFI-AVENTIS-2010SA040956

PATIENT
  Age: 76 Year
  Sex: Female

DRUGS (14)
  1. MULTAQ [Suspect]
     Indication: ATRIAL FIBRILLATION
     Route: 048
     Dates: start: 20091207, end: 20091218
  2. LOPRESSOR [Concomitant]
  3. COUMADIN [Concomitant]
  4. MULTI-VITAMINS [Concomitant]
  5. PLAQUENIL [Concomitant]
  6. EVISTA [Concomitant]
  7. CALCIUM [Concomitant]
  8. LEVOTHYROXINE SODIUM [Concomitant]
  9. ASPIRIN [Concomitant]
  10. PRAVASTATIN [Concomitant]
  11. FOLIC ACID [Concomitant]
  12. THIAMINE [Concomitant]
  13. POTASSIUM [Concomitant]
  14. LORAZEPAM [Concomitant]

REACTIONS (2)
  - ATRIAL FIBRILLATION [None]
  - DEATH [None]
